FAERS Safety Report 7375696-5 (Version None)
Quarter: 2011Q1

REPORT INFORMATION
  Report Type: 
  Country: None (occurrence: None)
  Receive Date: 20110315
  Receipt Date: 20110118
  Transmission Date: 20110831
  Serious: Yes (Other)
  Sender: FDA-Public Use
  Company Number: FKO201100023

PATIENT

DRUGS (2)
  1. CARBOPLATIN (MANUFACTURER UNKNOWN) (CARBOPLATIN) (CARBOPLATIN) [Suspect]
     Indication: HEAD AND NECK CANCER
  2. PACLITAXEL [Suspect]
     Indication: HEAD AND NECK CANCER

REACTIONS (8)
  - NAUSEA [None]
  - PAIN [None]
  - DYSPHAGIA [None]
  - ANXIETY [None]
  - FATIGUE [None]
  - VOMITING [None]
  - INSOMNIA [None]
  - DRY MOUTH [None]
